FAERS Safety Report 9032693 (Version 1)
Quarter: 2013Q1

REPORT INFORMATION
  Report Type: Spontaneous
  Country: US (occurrence: None)
  Receive Date: 20130110
  Receipt Date: 20130110
  Transmission Date: 20140127
  Serious: Yes (Hospitalization, Disabling)
  Sender: FDA-Public Use
  Company Number: 1549472

PATIENT
  Age: 12 Year
  Sex: Female

DRUGS (11)
  1. BUPIVACAINE HYDROCHLORIDE [Suspect]
     Indication: EPIDURAL ANAESTHESIA
     Route: 008
  2. FENTANYL CITRATE [Suspect]
     Indication: EPIDURAL ANAESTHESIA
     Route: 008
  3. LIDOCAINE HCL WITH EPINEPHRINE [Suspect]
     Indication: EPIDURAL ANAESTHESIA
     Route: 008
  4. BUPIVACAINE [Suspect]
     Indication: EPIDURAL ANAESTHESIA
     Route: 008
  5. BUPIVACAINE [Suspect]
     Indication: EPIDURAL ANAESTHESIA
     Route: 008
  6. BUPIVACAINE [Suspect]
     Indication: HEART RATE INCREASED
     Route: 008
  7. ISOTONIC SOLUTIONS [Concomitant]
  8. HETASTARCH [Concomitant]
  9. CEPHAZOLIN [Concomitant]
  10. ANESTHETICS [Concomitant]
  11. LIDOCAINE-EPINEPHRINE [Concomitant]

REACTIONS (4)
  - Abdominal pain [None]
  - Epidural lipomatosis [None]
  - Hypotonia [None]
  - Anorectal disorder [None]
